FAERS Safety Report 7558097-6 (Version None)
Quarter: 2011Q2

REPORT INFORMATION
  Report Type: 
  Country: None (occurrence: None)
  Receive Date: 20110620
  Receipt Date: 20110610
  Transmission Date: 20111010
  Serious: Yes (Hospitalization)
  Sender: FDA-Public Use
  Company Number: BR-ASTRAZENECA-2010SE35713

PATIENT
  Age: 54 Year
  Sex: Female
  Weight: 58 kg

DRUGS (6)
  1. DONAREN [Concomitant]
     Indication: DEPRESSION
     Route: 048
     Dates: end: 20101101
  2. SERTRALINE [Concomitant]
     Indication: DEPRESSION
     Route: 048
     Dates: start: 20040101
  3. ARIMIDEX [Suspect]
     Indication: BREAST CANCER
     Dosage: OD
     Route: 048
     Dates: start: 20070101, end: 20100728
  4. ALENDRONATE SODIUM [Concomitant]
     Indication: OSTEOPENIA
     Dates: start: 20070101, end: 20100601
  5. TAMOXIFEN CITRATE [Suspect]
     Indication: BREAST CANCER
     Route: 048
     Dates: start: 20020101, end: 20070101
  6. FASLODEX [Suspect]
     Indication: BREAST CANCER
     Route: 030
     Dates: start: 20100701

REACTIONS (13)
  - DIZZINESS [None]
  - APPLICATION SITE BURN [None]
  - HEADACHE [None]
  - MASTECTOMY [None]
  - CHEMOTHERAPY [None]
  - BREAST CANCER [None]
  - OSTEOPENIA [None]
  - FATIGUE [None]
  - WEIGHT DECREASED [None]
  - ASTHENIA [None]
  - BREAST CANCER RECURRENT [None]
  - MALIGNANT BREAST LUMP REMOVAL [None]
  - BRACHYTHERAPY [None]
